FAERS Safety Report 17202605 (Version 1)
Quarter: 2019Q4

REPORT INFORMATION
  Report Type: Spontaneous
  Country: US (occurrence: US)
  Receive Date: 20191226
  Receipt Date: 20191226
  Transmission Date: 20200122
  Serious: Yes (Other)
  Sender: FDA-Public Use
  Company Number: US-JNJFOC-20191228976

PATIENT
  Age: 28 Year
  Sex: Male
  Weight: 93.52 kg

DRUGS (1)
  1. LISTERINE TOTAL CARE STAIN REMOVER ANTICAVITY FLUORIDE FRESH MINT [Suspect]
     Active Substance: SODIUM FLUORIDE
     Indication: DENTAL DISORDER PROPHYLAXIS
     Dosage: 1/3 OF LID WITH WATER. 2 TIMES A DAY FOR THE 3 DAYS.
     Route: 048
     Dates: start: 20191209, end: 20191211

REACTIONS (2)
  - Wrong technique in product usage process [Unknown]
  - Pharyngeal haemorrhage [Not Recovered/Not Resolved]

NARRATIVE: CASE EVENT DATE: 201912
